FAERS Safety Report 10013788 (Version 4)
Quarter: 2016Q1

REPORT INFORMATION
  Report Type: Spontaneous
  Country: US (occurrence: US)
  Receive Date: 20140316
  Receipt Date: 20160322
  Transmission Date: 20160525
  Serious: Yes (Hospitalization, Other)
  Sender: FDA-Public Use
  Company Number: US-BAYER-2014-039487

PATIENT
  Age: 31 Year
  Sex: Female
  Weight: 58.5 kg

DRUGS (1)
  1. MIRENA [Suspect]
     Active Substance: LEVONORGESTREL
     Indication: CONTRACEPTION
     Dosage: 20 MCG/24HR, CONT
     Route: 015
     Dates: start: 200509, end: 20120402

REACTIONS (7)
  - Injury [None]
  - Complication associated with device [None]
  - Embedded device [None]
  - Pelvic abscess [None]
  - Pain [None]
  - Device issue [None]
  - Device use issue [None]

NARRATIVE: CASE EVENT DATE: 201204
